FAERS Safety Report 6677202-7 (Version None)
Quarter: 2010Q2

REPORT INFORMATION
  Report Type: 
  Country: None (occurrence: None)
  Receive Date: 20100408
  Receipt Date: 20100324
  Transmission Date: 20101027
  Serious: Yes (Hospitalization)
  Sender: FDA-Public Use
  Company Number: IDA-00348

PATIENT
  Age: 72 Year
  Sex: Female

DRUGS (3)
  1. PROPRANOLOL (PROPRANOLOL) [Suspect]
     Dosage: 320 MG ONCE, ORAL FORMULATION: TABLET
     Route: 048
     Dates: start: 20070830
  2. (PREDNISOLONE) [Suspect]
     Indication: LOWER RESPIRATORY TRACT INFECTION
  3. AMOXICILLIN [Concomitant]

REACTIONS (9)
  - ACCIDENTAL OVERDOSE [None]
  - CONDITION AGGRAVATED [None]
  - DEHYDRATION [None]
  - DRUG DISPENSING ERROR [None]
  - FALL [None]
  - LOWER RESPIRATORY TRACT INFECTION [None]
  - MEDICATION ERROR [None]
  - WHITE BLOOD CELL COUNT INCREASED [None]
  - WRONG DRUG ADMINISTERED [None]
